FAERS Safety Report 22383032 (Version 10)
Quarter: 2024Q4

REPORT INFORMATION
  Report Type: Spontaneous
  Country: DE (occurrence: DE)
  Receive Date: 20230530
  Receipt Date: 20241112
  Transmission Date: 20250114
  Serious: Yes (Life-Threatening, Hospitalization, Other)
  Sender: PFIZER
  Company Number: DE-PFIZER INC-PV202300093499

PATIENT
  Age: 36 Year
  Sex: Male
  Weight: 89 kg

DRUGS (17)
  1. TAVOR (LORAZEPAM) [Suspect]
     Active Substance: LORAZEPAM
     Dosage: 1 MG
  2. QUETIAPINE [Suspect]
     Active Substance: QUETIAPINE
     Indication: Pain management
     Dosage: UNK
  3. QUETIAPINE [Suspect]
     Active Substance: QUETIAPINE
     Indication: Sleep disorder
  4. ZOLPIDEM TARTRATE [Suspect]
     Active Substance: ZOLPIDEM TARTRATE
     Indication: Sleep disorder
     Dosage: 10 MG
     Dates: start: 20230202
  5. ALPELISIB [Suspect]
     Active Substance: ALPELISIB
     Indication: PIK3CA related overgrowth spectrum
     Dosage: 125 MG, Q24H (EVERY 24 HOURS)
     Route: 048
     Dates: start: 20220609
  6. ALPELISIB [Suspect]
     Active Substance: ALPELISIB
     Dosage: 250 MG, EVERY 24 HOURS
     Route: 048
     Dates: start: 20230116
  7. ENOXAPARIN SODIUM [Suspect]
     Active Substance: ENOXAPARIN SODIUM
     Dosage: UNK
     Dates: start: 20230116, end: 20240202
  8. VITAMIN B12 [Concomitant]
     Active Substance: CYANOCOBALAMIN
     Dosage: UNK
     Dates: start: 20080915
  9. IRON\MINERALS\VITAMINS [Concomitant]
     Active Substance: IRON\MINERALS\VITAMINS
     Dosage: UNK
     Dates: start: 20140414
  10. MELATONIN [Concomitant]
     Active Substance: MELATONIN
     Dosage: UNK
     Dates: start: 20210115
  11. CHOLECALCIFEROL [Concomitant]
     Active Substance: CHOLECALCIFEROL
     Dosage: UNK
     Dates: start: 20210809
  12. TILIDINE HYDROCHLORIDE [Concomitant]
     Active Substance: TILIDINE HYDROCHLORIDE
     Dosage: UNK
     Dates: start: 20230104
  13. AMOXICILLIN [Concomitant]
     Active Substance: AMOXICILLIN
     Indication: Prophylaxis
     Dosage: UNK
     Dates: start: 20230217, end: 20230606
  14. TAZOBACTAM [Concomitant]
     Active Substance: TAZOBACTAM
     Dosage: UNK
     Dates: start: 20230217, end: 20230222
  15. BIOSAN [AMPICILLIN] [Concomitant]
     Dosage: UNK
     Dates: start: 20210301
  16. OMEGA-3 FATTY ACIDS [Concomitant]
     Active Substance: OMEGA-3 FATTY ACIDS
     Dosage: UNK
     Dates: start: 20210301
  17. PLANTAGO AFRA SEED [Concomitant]
     Active Substance: PLANTAGO AFRA SEED
     Dosage: UNK
     Dates: start: 20150216

REACTIONS (7)
  - Suicide attempt [Recovered/Resolved]
  - Suicidal ideation [Recovered/Resolved]
  - Poisoning [Unknown]
  - Mental impairment [Unknown]
  - Agitation [Unknown]
  - Anxiety [Unknown]
  - Psychiatric decompensation [Unknown]

NARRATIVE: CASE EVENT DATE: 20230224
